FAERS Safety Report 23498894 (Version 1)
Quarter: 2024Q1

REPORT INFORMATION
  Report Type: Spontaneous
  Country: US (occurrence: None)
  Receive Date: 20240207
  Receipt Date: 20240207
  Transmission Date: 20240410
  Serious: No
  Sender: FDA-Public Use
  Company Number: None

PATIENT
  Sex: Male

DRUGS (5)
  1. VIGABATRIN [Suspect]
     Active Substance: VIGABATRIN
     Indication: Epilepsy
     Dosage: FREQUENCY : TWICE A DAY;?OTHER ROUTE : G-TUBE;?
     Route: 050
  2. CLONAZEPAM [Concomitant]
     Active Substance: CLONAZEPAM
  3. MIRALAC [Concomitant]
     Active Substance: CALCIUM CARBONATE
  4. TYLENOL [Concomitant]
     Active Substance: ACETAMINOPHEN
  5. KEPPRA [Concomitant]
     Active Substance: LEVETIRACETAM

REACTIONS (4)
  - Therapy change [None]
  - Tremor [None]
  - Head titubation [None]
  - Eye movement disorder [None]
